FAERS Safety Report 8854911 (Version 2)
Quarter: 2012Q4

REPORT INFORMATION
  Report Type: 
  Country: JP (occurrence: JP)
  Receive Date: 20121023
  Receipt Date: 20121107
  Transmission Date: 20130627
  Serious: Yes (Death)
  Sender: FDA-Public Use
  Company Number: JP-ELI_LILLY_AND_COMPANY-JP201210004576

PATIENT
  Age: 35 Year
  Sex: Male

DRUGS (5)
  1. CYMBALTA [Suspect]
     Indication: DEPRESSION
     Dosage: 30 mg, qd
     Route: 048
     Dates: start: 201106
  2. CYMBALTA [Suspect]
     Dosage: 60 mg, qd
     Route: 048
     Dates: start: 20110620
  3. REFLEX                             /01293201/ [Concomitant]
     Dosage: UNK
  4. DEPAS [Concomitant]
     Dosage: UNK
  5. SILECE [Concomitant]
     Dosage: UNK

REACTIONS (2)
  - Serotonin syndrome [Fatal]
  - Respiratory depression [Fatal]
